FAERS Safety Report 6275450-1 (Version None)
Quarter: 2009Q3

REPORT INFORMATION
  Report Type: 
  Country: None (occurrence: None)
  Receive Date: 20090721
  Receipt Date: 20090715
  Transmission Date: 20100115
  Serious: Yes (Other)
  Sender: FDA-Public Use
  Company Number: US-JNJFOC-20090705395

PATIENT
  Sex: Female
  Weight: 56.7 kg

DRUGS (9)
  1. TOPAMAX [Suspect]
     Route: 048
  2. TOPAMAX [Suspect]
     Indication: MIGRAINE PROPHYLAXIS
     Route: 048
  3. TOPAMAX [Suspect]
     Route: 048
  4. PROTONIX [Concomitant]
     Indication: GASTROOESOPHAGEAL REFLUX DISEASE
     Route: 065
  5. VITAMIN [Concomitant]
     Indication: MEDICAL DIET
     Route: 065
  6. DONNATAL [Concomitant]
     Indication: GASTROINTESTINAL DISORDER
     Route: 065
  7. ZOMIG [Concomitant]
     Indication: MIGRAINE
     Route: 065
  8. VICODIN [Concomitant]
     Indication: MIGRAINE
     Route: 065
  9. YAZ [Concomitant]
     Indication: MENOPAUSE
     Route: 065

REACTIONS (2)
  - DEAFNESS UNILATERAL [None]
  - EAR CONGESTION [None]
